FAERS Safety Report 11159043 (Version 1)
Quarter: 2015Q2

REPORT INFORMATION
  Report Type: Spontaneous
  Country: IT (occurrence: IT)
  Receive Date: 20150603
  Receipt Date: 20150603
  Transmission Date: 20150821
  Serious: Yes (Other)
  Sender: FDA-Public Use
  Company Number: IT-TEVA-567407ISR

PATIENT
  Age: 12 Year
  Sex: Male

DRUGS (7)
  1. LOMUSTINE. [Suspect]
     Active Substance: LOMUSTINE
     Indication: PRIMITIVE NEUROECTODERMAL TUMOUR
     Dosage: 1 CYCLE
     Route: 065
  2. METHOTREXATE [Suspect]
     Active Substance: METHOTREXATE
     Indication: PRIMITIVE NEUROECTODERMAL TUMOUR
     Dosage: HIGH-DOSE
     Route: 065
  3. CARBOPLATIN. [Suspect]
     Active Substance: CARBOPLATIN
     Indication: PRIMITIVE NEUROECTODERMAL TUMOUR
     Route: 065
  4. CYCLOPHOSPHAMIDE. [Suspect]
     Active Substance: CYCLOPHOSPHAMIDE
     Indication: PRIMITIVE NEUROECTODERMAL TUMOUR
     Route: 065
  5. ETOPOSIDE. [Suspect]
     Active Substance: ETOPOSIDE
     Indication: PRIMITIVE NEUROECTODERMAL TUMOUR
     Route: 065
  6. THIOTEPA. [Suspect]
     Active Substance: THIOTEPA
     Indication: PRIMITIVE NEUROECTODERMAL TUMOUR
     Dosage: HIGH-DOSE
     Route: 065
  7. VINCRISTINE [Suspect]
     Active Substance: VINCRISTINE
     Indication: PRIMITIVE NEUROECTODERMAL TUMOUR
     Dosage: 1 CYCLE
     Route: 065

REACTIONS (3)
  - Mucosal inflammation [Unknown]
  - Wernicke^s encephalopathy [Recovering/Resolving]
  - Haematotoxicity [Unknown]
